FAERS Safety Report 17678827 (Version 3)
Quarter: 2025Q2

REPORT INFORMATION
  Report Type: Spontaneous
  Country: GB (occurrence: GB)
  Receive Date: 20200417
  Receipt Date: 20250621
  Transmission Date: 20250716
  Serious: Yes (Hospitalization, Other)
  Sender: AUROBINDO
  Company Number: GB-PFIZER INC-2020120685

PATIENT
  Age: 4 Year
  Sex: Male

DRUGS (9)
  1. VORICONAZOLE [Interacting]
     Active Substance: VORICONAZOLE
     Indication: Hepatosplenic candidiasis
     Route: 065
  2. VINCRISTINE SULFATE [Interacting]
     Active Substance: VINCRISTINE SULFATE
     Indication: Acute lymphocytic leukaemia
     Route: 065
  3. FLUCYTOSINE [Concomitant]
     Active Substance: FLUCYTOSINE
     Indication: Fungal infection
     Route: 065
  4. FLUCYTOSINE [Concomitant]
     Active Substance: FLUCYTOSINE
     Indication: Antifungal treatment
  5. ASPARAGINASE [Concomitant]
     Active Substance: ASPARAGINASE
     Indication: Acute lymphocytic leukaemia
     Route: 065
  6. DEXAMETHASONE [Concomitant]
     Active Substance: DEXAMETHASONE
     Indication: Acute lymphocytic leukaemia
     Route: 065
  7. AMBISOME [Concomitant]
     Active Substance: AMPHOTERICIN B
     Indication: Fungal infection
     Route: 065
  8. MICAFUNGIN [Concomitant]
     Active Substance: MICAFUNGIN SODIUM
     Indication: Hepatosplenic candidiasis
     Route: 065
  9. PREDNISOLONE [Concomitant]
     Active Substance: PREDNISOLONE
     Indication: Fungal infection
     Route: 065

REACTIONS (10)
  - Drug level below therapeutic [Unknown]
  - Labelled drug-drug interaction medication error [Unknown]
  - Abdominal distension [Unknown]
  - Ileus [Unknown]
  - Autonomic neuropathy [Unknown]
  - Immune reconstitution inflammatory syndrome [Recovering/Resolving]
  - Fungal infection [Recovered/Resolved]
  - Hepatosplenic candidiasis [Recovered/Resolved]
  - Drug interaction [Unknown]
  - Drug ineffective [Unknown]
